FAERS Safety Report 4925972-8 (Version None)
Quarter: 2006Q1

REPORT INFORMATION
  Report Type: 
  Country: None (occurrence: None)
  Receive Date: 20060228
  Receipt Date: 20060217
  Transmission Date: 20060701
  Serious: Yes (Hospitalization)
  Sender: FDA-Public Use
  Company Number: JP-JNJFOC-20060204080

PATIENT
  Age: 69 Year
  Sex: Male

DRUGS (9)
  1. OFLOCET [Suspect]
     Indication: PROSTATITIS
     Route: 048
     Dates: start: 20060111, end: 20060116
  2. ATARAX [Suspect]
     Indication: DRUG USE FOR UNKNOWN INDICATION
     Route: 048
     Dates: start: 20060111, end: 20060116
  3. TOPALGIC [Concomitant]
     Route: 048
     Dates: start: 20060111, end: 20060117
  4. AUGMENTIN '125' [Concomitant]
     Route: 048
     Dates: start: 20060111
  5. AUGMENTIN '125' [Concomitant]
     Route: 048
     Dates: start: 20060111
  6. INSULIN [Concomitant]
  7. PERFALGAN [Concomitant]
  8. CALCIPARINE [Concomitant]
  9. LASILIX [Concomitant]

REACTIONS (2)
  - AREFLEXIA [None]
  - ENCEPHALOPATHY [None]
